FAERS Safety Report 13038508 (Version 1)
Quarter: 2016Q4

REPORT INFORMATION
  Report Type: Report from Study
  Country: US (occurrence: US)
  Receive Date: 20161219
  Receipt Date: 20161219
  Transmission Date: 20170207
  Serious: No
  Sender: FDA-Public Use
  Company Number: US-AMGEN-USASL2016177870

PATIENT
  Age: 16 Year
  Sex: Female

DRUGS (1)
  1. ENBREL [Suspect]
     Active Substance: ETANERCEPT
     Indication: JUVENILE IDIOPATHIC ARTHRITIS
     Dosage: 50 MG, QWK
     Route: 065

REACTIONS (6)
  - Oropharyngeal pain [Unknown]
  - Injection site erythema [Unknown]
  - Dysphonia [Unknown]
  - Injection site pruritus [Unknown]
  - Pain [Unknown]
  - Injection site rash [Unknown]

NARRATIVE: CASE EVENT DATE: 20161212
